FAERS Safety Report 22929939 (Version 5)
Quarter: 2023Q4

REPORT INFORMATION
  Report Type: Spontaneous
  Country: US (occurrence: US)
  Receive Date: 20230911
  Receipt Date: 20231113
  Transmission Date: 20240109
  Serious: No
  Sender: FDA-Public Use
  Company Number: US-PFIZER INC-PV202300146334

PATIENT
  Age: 15 Year
  Sex: Male

DRUGS (1)
  1. GENOTROPIN [Suspect]
     Active Substance: SOMATROPIN
     Dosage: 1 MG, DAILY
     Dates: start: 202304

REACTIONS (7)
  - Device use issue [Unknown]
  - Device difficult to use [Unknown]
  - Device leakage [Unknown]
  - Device malfunction [Unknown]
  - Device defective [Unknown]
  - Device physical property issue [Unknown]
  - Needle issue [Unknown]
